FAERS Safety Report 11069796 (Version 1)
Quarter: 2015Q2

REPORT INFORMATION
  Report Type: Spontaneous
  Country: US (occurrence: US)
  Receive Date: 20150427
  Receipt Date: 20150427
  Transmission Date: 20150821
  Serious: No
  Sender: FDA-Public Use
  Company Number: US-PFIZER INC-2015140992

PATIENT
  Sex: Female

DRUGS (8)
  1. DECLOMYCIN [Suspect]
     Active Substance: DEMECLOCYCLINE HYDROCHLORIDE
     Dosage: UNK
  2. AMITRIPTYLINE [Suspect]
     Active Substance: AMITRIPTYLINE
     Dosage: UNK
  3. KEFLEX [Suspect]
     Active Substance: CEPHALEXIN
     Dosage: UNK
  4. TYSABRI [Suspect]
     Active Substance: NATALIZUMAB
     Dosage: UNK
  5. ZMAX [Suspect]
     Active Substance: AZITHROMYCIN DIHYDRATE
     Dosage: UNK
  6. ALBUTEROL. [Suspect]
     Active Substance: ALBUTEROL
     Dosage: UNK
  7. ERYTHROMYCIN. [Suspect]
     Active Substance: ERYTHROMYCIN
     Dosage: UNK
  8. AVONEX [Suspect]
     Active Substance: INTERFERON BETA-1A
     Dosage: UNK

REACTIONS (1)
  - Drug hypersensitivity [Unknown]
